FAERS Safety Report 10023635 (Version 2)
Quarter: 2014Q1

REPORT INFORMATION
  Report Type: Spontaneous
  Country: US (occurrence: None)
  Receive Date: 20140108
  Receipt Date: 20140326
  Transmission Date: 20141002
  Serious: Yes (Hospitalization, Other)
  Sender: FDA-Public Use
  Company Number: ADR-2013-01733

PATIENT
  Sex: Female

DRUGS (2)
  1. BUPIVACAINE [Suspect]
     Indication: PAIN
  2. FENTANYL [Suspect]

REACTIONS (4)
  - Cellulitis [None]
  - Catheter site extravasation [None]
  - Effusion [None]
  - Application site pain [None]
